FAERS Safety Report 21898104 (Version 1)
Quarter: 2023Q1

REPORT INFORMATION
  Report Type: Spontaneous
  Country: US (occurrence: US)
  Receive Date: 20230123
  Receipt Date: 20230123
  Transmission Date: 20230418
  Serious: Yes (Other)
  Sender: FDA-Public Use
  Company Number: US-MYLANLABS-2023M1006811

PATIENT
  Age: 26 Year
  Sex: Male

DRUGS (3)
  1. GABAPENTIN [Suspect]
     Active Substance: GABAPENTIN
     Indication: Compartment syndrome
     Dosage: 300 MILLIGRAM, TID (THREE TIMES PER DAY)
     Route: 065
  2. MORPHINE [Suspect]
     Active Substance: MORPHINE
     Indication: Compartment syndrome
     Dosage: 15 MILLIGRAM, Q8H (MORPHINE EXTENDED-RELEASE)
     Route: 065
  3. OXYCODONE [Suspect]
     Active Substance: OXYCODONE
     Indication: Compartment syndrome
     Dosage: 15 MILLIGRAM, Q4H
     Route: 065

REACTIONS (1)
  - Drug ineffective [Unknown]
